FAERS Safety Report 8140179-1 (Version None)
Quarter: 2012Q1

REPORT INFORMATION
  Report Type: 
  Country: None (occurrence: None)
  Receive Date: 20120216
  Receipt Date: 20120206
  Transmission Date: 20120608
  Serious: No
  Sender: FDA-Public Use
  Company Number: US-BIOGENIDEC-2012BI004037

PATIENT
  Age: 61 Year
  Sex: Female

DRUGS (5)
  1. TYSABRI [Suspect]
     Indication: MULTIPLE SCLEROSIS
     Route: 042
  2. TYSABRI [Suspect]
     Route: 042
     Dates: start: 20061127, end: 20080807
  3. AVONEX [Concomitant]
     Indication: MULTIPLE SCLEROSIS
     Route: 030
     Dates: start: 20011201
  4. TYSABRI [Suspect]
     Route: 042
     Dates: start: 20081001, end: 20100629
  5. TYSABRI [Suspect]
     Route: 042
     Dates: start: 20110112

REACTIONS (7)
  - TREMOR [None]
  - ABASIA [None]
  - MULTIPLE SCLEROSIS RELAPSE [None]
  - HEADACHE [None]
  - PYREXIA [None]
  - FATIGUE [None]
  - VIRAL INFECTION [None]
